FAERS Safety Report 8029188-0 (Version None)
Quarter: 2012Q1

REPORT INFORMATION
  Report Type: 
  Country: None (occurrence: None)
  Receive Date: 20120106
  Receipt Date: 20120103
  Transmission Date: 20120608
  Serious: Yes (Other)
  Sender: FDA-Public Use
  Company Number: PHHY2011CA05691

PATIENT
  Sex: Female

DRUGS (1)
  1. ZOLEDRONOC ACID [Suspect]
     Indication: OSTEOPOROSIS
     Dosage: 5 MG, UNK
     Dates: start: 20110110

REACTIONS (6)
  - HERPES ZOSTER [None]
  - ARTHRALGIA [None]
  - DIARRHOEA [None]
  - INFLUENZA [None]
  - OROPHARYNGEAL PAIN [None]
  - MYALGIA [None]
